FAERS Safety Report 24411307 (Version 1)
Quarter: 2024Q4

REPORT INFORMATION
  Report Type: Spontaneous
  Country: US (occurrence: None)
  Receive Date: 20241004
  Receipt Date: 20241004
  Transmission Date: 20250114
  Serious: Yes (Hospitalization)
  Sender: Public
  Company Number: None

PATIENT
  Age: 68 Year
  Sex: Female

DRUGS (1)
  1. DIETARY SUPPLEMENT [Suspect]
     Active Substance: DIETARY SUPPLEMENT
     Indication: Antioxidant therapy
     Dosage: OTHER FREQUENCY : PRN;?
     Route: 041
     Dates: start: 20240730, end: 20240730

REACTIONS (7)
  - Nausea [None]
  - Vomiting [None]
  - Erythema [None]
  - Piloerection [None]
  - Infusion related reaction [None]
  - Loss of consciousness [None]
  - Blood pressure decreased [None]

NARRATIVE: CASE EVENT DATE: 20240730
